FAERS Safety Report 18541932 (Version 1)
Quarter: 2020Q4

REPORT INFORMATION
  Report Type: Spontaneous
  Country: DE (occurrence: DE)
  Receive Date: 20201125
  Receipt Date: 20201125
  Transmission Date: 20210114
  Serious: No
  Sender: FDA-Public Use
  Company Number: DE-TOLMAR, INC.-20DE023920

PATIENT
  Sex: Female

DRUGS (1)
  1. IMIQUIMOD. [Suspect]
     Active Substance: IMIQUIMOD
     Indication: POROKERATOSIS
     Route: 061

REACTIONS (1)
  - Drug ineffective [Unknown]
